FAERS Safety Report 20479947 (Version 1)
Quarter: 2022Q1

REPORT INFORMATION
  Report Type: Report from Study
  Country: FR (occurrence: FR)
  Receive Date: 20220216
  Receipt Date: 20220216
  Transmission Date: 20220424
  Serious: Yes (Hospitalization)
  Sender: FDA-Public Use
  Company Number: FR-SERVIER-S22001411

PATIENT

DRUGS (8)
  1. PEGASPARGASE [Suspect]
     Active Substance: PEGASPARGASE
     Indication: Acute lymphocytic leukaemia
     Dosage: 2550 IU, D15, D43
     Route: 042
     Dates: start: 20211210, end: 20220112
  2. TN UNSPECIFIED [Concomitant]
     Indication: Acute lymphocytic leukaemia
     Dosage: 1000 MG, D1, D29
     Route: 042
     Dates: start: 20211126, end: 20211229
  3. TN UNSPECIFIED [Concomitant]
     Indication: Acute lymphocytic leukaemia
     Dosage: 60 MG, D1 TO D14, D29 TO D42
     Route: 048
     Dates: start: 20211126, end: 20220111
  4. TN UNSPECIFIED [Concomitant]
     Indication: Acute lymphocytic leukaemia
     Dosage: 76 MG, D3 TO D6, D10 TO D13
     Route: 042
     Dates: start: 20211128, end: 20220110
  5. TN UNSPECIFIED [Concomitant]
     Dosage: 30 MG, D3, D16, D31, D46
     Route: 037
     Dates: start: 20211128, end: 20220115
  6. TN UNSPECIFIED [Concomitant]
     Indication: Acute lymphocytic leukaemia
     Dosage: 12 MG, D3, D16, D31, D46
     Route: 037
     Dates: start: 20211128, end: 20220115
  7. TN UNSPECIFIED [Concomitant]
     Indication: Acute lymphocytic leukaemia
     Dosage: 15 MG, D3, D16, D31, D46
     Route: 037
     Dates: start: 20211128, end: 20220115
  8. TN UNSPECIFIED [Concomitant]
     Indication: Acute lymphocytic leukaemia
     Dosage: 1.5 MG, D15, D22, D43, D50
     Route: 042
     Dates: start: 20211210, end: 20220119

REACTIONS (1)
  - Febrile bone marrow aplasia [Recovered/Resolved]

NARRATIVE: CASE EVENT DATE: 20220119
